FAERS Safety Report 20695363 (Version 1)
Quarter: 2022Q2

REPORT INFORMATION
  Report Type: Spontaneous
  Country: US (occurrence: US)
  Receive Date: 20220411
  Receipt Date: 20220411
  Transmission Date: 20220720
  Serious: Yes (Other)
  Sender: FDA-Public Use
  Company Number: US-PFIZER INC-202200496047

PATIENT
  Age: 54 Year
  Sex: Female

DRUGS (4)
  1. CARBOPLATIN [Interacting]
     Active Substance: CARBOPLATIN
     Dosage: UNK
  2. PACLITAXEL [Interacting]
     Active Substance: PACLITAXEL
     Dosage: UNK
  3. DOXIL [Interacting]
     Active Substance: DOXORUBICIN HYDROCHLORIDE
  4. NIRAPARIB [Interacting]
     Active Substance: NIRAPARIB
     Dosage: UNK

REACTIONS (3)
  - Second primary malignancy [Unknown]
  - Myelodysplastic syndrome [Unknown]
  - Drug interaction [Unknown]
